FAERS Safety Report 9348707 (Version 2)
Quarter: 2013Q3

REPORT INFORMATION
  Report Type: Report from Study
  Country: JP (occurrence: JP)
  Receive Date: 20130614
  Receipt Date: 20130813
  Transmission Date: 20140515
  Serious: Yes (Death)
  Sender: FDA-Public Use
  Company Number: JP-SANOFI-AVENTIS-2013SA059521

PATIENT
  Age: 75 Year
  Sex: Male
  Weight: 69.7 kg

DRUGS (9)
  1. RASBURICASE [Suspect]
     Indication: ACUTE MYELOID LEUKAEMIA
     Route: 042
     Dates: start: 20120412, end: 20120412
  2. DAUNOMYCIN [Concomitant]
     Indication: ACUTE MYELOID LEUKAEMIA
     Dosage: DAY 2 FOR 1 WEEK?STRENGTH: 20 MG
     Route: 042
     Dates: start: 20120412, end: 20120413
  3. CYLOCIDE [Concomitant]
     Indication: ACUTE MYELOID LEUKAEMIA
     Dosage: DAY 2 FOR 1 WEEK
     Route: 042
     Dates: start: 20120412, end: 20120413
  4. PREDONINE [Concomitant]
     Indication: ACUTE MYELOID LEUKAEMIA
     Dosage: DAY 2 FOR 1 WEEK
     Route: 042
     Dates: start: 20120412, end: 20120413
  5. NASEA [Concomitant]
     Indication: PROPHYLAXIS
     Dosage: STRENGTH: 0.3 MG
     Route: 042
     Dates: start: 20120412, end: 20120413
  6. ANTITHROMBOTIC AGENTS [Concomitant]
     Dosage: STRENGTH: 12800 U DOSE:25600 UNIT(S)
     Route: 042
     Dates: start: 20120412, end: 20120413
  7. LASIX [Concomitant]
     Route: 042
     Dates: start: 20120412, end: 20120412
  8. MAXIPIME [Concomitant]
     Indication: PROPHYLAXIS
     Route: 042
     Dates: start: 20120412, end: 20120413
  9. FUNGUARD [Concomitant]
     Indication: PROPHYLAXIS
     Dates: start: 20120413, end: 20120413

REACTIONS (10)
  - Methaemoglobinaemia [Fatal]
  - Multi-organ failure [Fatal]
  - Metabolic acidosis [Fatal]
  - Blood pH decreased [Fatal]
  - Blood bicarbonate decreased [Fatal]
  - Base excess decreased [Fatal]
  - Renal failure acute [Fatal]
  - Blood urea increased [Fatal]
  - Blood creatinine increased [Fatal]
  - Blood potassium increased [Fatal]
